FAERS Safety Report 4598256-8 (Version None)
Quarter: 2005Q1

REPORT INFORMATION
  Report Type: 
  Country: None (occurrence: None)
  Receive Date: 20050304
  Receipt Date: 20050228
  Transmission Date: 20050727
  Serious: Yes (Other)
  Sender: FDA-Public Use
  Company Number: US-GLAXOSMITHKLINE-A0547581A

PATIENT
  Age: 45 Year
  Sex: Female

DRUGS (7)
  1. LAMICTAL [Suspect]
     Indication: BIPOLAR DISORDER
     Route: 048
  2. TOPAMAX [Concomitant]
  3. LEXAPRO [Concomitant]
  4. XANAX [Concomitant]
  5. AMBIEN [Concomitant]
  6. HERBAL SUPPLEMENT [Concomitant]
  7. FISH OIL [Concomitant]

REACTIONS (3)
  - SYSTEMIC MASTOCYTOSIS [None]
  - TRYPTASE INCREASED [None]
  - URTICARIA [None]
